FAERS Safety Report 5311078-5 (Version None)
Quarter: 2007Q2

REPORT INFORMATION
  Report Type: 
  Country: None (occurrence: None)
  Receive Date: 20070427
  Receipt Date: 20070427
  Transmission Date: 20071010
  Serious: Yes (Hospitalization)
  Sender: FDA-Public Use
  Company Number: None

PATIENT
  Sex: Female

DRUGS (3)
  1. AUGMENTIN '125' [Suspect]
     Indication: OTITIS MEDIA
     Dosage: AUGMENTIN 1/DAY PO
     Route: 048
     Dates: start: 20070314, end: 20070407
  2. CETUXIMAB [Concomitant]
  3. CARBOPLATIN [Concomitant]

REACTIONS (1)
  - PSEUDOMEMBRANOUS COLITIS [None]
